FAERS Safety Report 17531357 (Version 1)
Quarter: 2020Q1

REPORT INFORMATION
  Report Type: Spontaneous
  Country: NZ (occurrence: NZ)
  Receive Date: 20200311
  Receipt Date: 20200311
  Transmission Date: 20200409
  Serious: Yes (Other)
  Sender: FDA-Public Use
  Company Number: NZ-009507513-2003NZL003595

PATIENT
  Age: 32 Year
  Sex: Male

DRUGS (2)
  1. CYCLOSPORINE. [Interacting]
     Active Substance: CYCLOSPORINE
  2. POSACONAZOLE [Suspect]
     Active Substance: POSACONAZOLE

REACTIONS (5)
  - Thrombocytopenia [Unknown]
  - Drug level increased [Unknown]
  - Generalised tonic-clonic seizure [Unknown]
  - Renal impairment [Unknown]
  - Drug interaction [Unknown]
